FAERS Safety Report 6759524-4 (Version None)
Quarter: 2010Q2

REPORT INFORMATION
  Report Type: 
  Country: None (occurrence: None)
  Receive Date: 20100603
  Receipt Date: 20100517
  Transmission Date: 20101027
  Serious: Yes (Life-Threatening, Other)
  Sender: FDA-Public Use
  Company Number: FR-SOLVAY-00310003150

PATIENT
  Age: 44 Year
  Sex: Male

DRUGS (2)
  1. FLUVOXAMINE MALEATE [Suspect]
     Indication: DEPRESSION
     Dosage: 50 MILLIGRAM(S) ORAL
     Route: 048
  2. SUBUTEX [Concomitant]

REACTIONS (2)
  - FATIGUE [None]
  - GRAND MAL CONVULSION [None]
